FAERS Safety Report 23634295 (Version 1)
Quarter: 2024Q1

REPORT INFORMATION
  Report Type: Spontaneous
  Country: DE (occurrence: DE)
  Receive Date: 20240314
  Receipt Date: 20240314
  Transmission Date: 20240410
  Serious: Yes (Other)
  Sender: FDA-Public Use
  Company Number: None

PATIENT
  Age: 31 Year
  Sex: Female
  Weight: 52 kg

DRUGS (1)
  1. DOXYCYCLINE [Suspect]
     Active Substance: DOXYCYCLINE
     Indication: Salpingo-oophoritis
     Dosage: 1ST DAY 2X100. FROM THE 2ND DAY 1X 100MG,100
     Route: 048
     Dates: start: 20240124, end: 20240129

REACTIONS (8)
  - Hypertension [Recovering/Resolving]
  - Pelvic pain [Recovering/Resolving]
  - Palpitations [Recovering/Resolving]
  - Ocular discomfort [Recovering/Resolving]
  - Cardiovascular disorder [Recovering/Resolving]
  - Bedridden [Recovering/Resolving]
  - Dysstasia [Recovering/Resolving]
  - Head discomfort [Recovering/Resolving]

NARRATIVE: CASE EVENT DATE: 20240124
